FAERS Safety Report 8386075-6 (Version None)
Quarter: 2012Q2

REPORT INFORMATION
  Report Type: 
  Country: None (occurrence: None)
  Receive Date: 20120523
  Receipt Date: 20120504
  Transmission Date: 20120825
  Serious: Yes (Death)
  Sender: FDA-Public Use
  Company Number: 2012P1003754

PATIENT

DRUGS (13)
  1. METOPROLOL TARTRATE [Concomitant]
  2. HYDROCODONE BITARTRATE + ACETAMINOPHEN [Concomitant]
  3. VENLAFAXINE [Concomitant]
  4. FENTANYL [Suspect]
     Indication: NECK PAIN
     Dosage: 25 MCG/HR; ;TDER
     Route: 062
     Dates: start: 20100511, end: 20100615
  5. FENTANYL [Suspect]
     Indication: INTERVERTEBRAL DISC PROTRUSION
     Dosage: 25 MCG/HR; ;TDER
     Route: 062
     Dates: start: 20100511, end: 20100615
  6. FENTANYL [Suspect]
     Indication: NECK PAIN
     Dosage: 50 MCG/HR; ;TDER
     Route: 062
     Dates: start: 20100615
  7. FENTANYL [Suspect]
     Indication: INTERVERTEBRAL DISC PROTRUSION
     Dosage: 50 MCG/HR; ;TDER
     Route: 062
     Dates: start: 20100615
  8. XOPENEX HFA AEROSOL [Concomitant]
  9. ALPRAZOLAM [Concomitant]
  10. AMRIX [Concomitant]
  11. SEROQUEL [Concomitant]
  12. OXCARBAZEPINE [Concomitant]
  13. MARIJUANA [Concomitant]

REACTIONS (9)
  - IMPAIRED WORK ABILITY [None]
  - ACCIDENTAL DEATH [None]
  - OVERDOSE [None]
  - MULTIPLE INJURIES [None]
  - SLEEP DISORDER [None]
  - CONTUSION [None]
  - TOXICITY TO VARIOUS AGENTS [None]
  - CONGESTIVE CARDIOMYOPATHY [None]
  - SUBGALEAL HAEMATOMA [None]
